FAERS Safety Report 7742165 (Version 2)
Quarter: 2014Q1

REPORT INFORMATION
  Report Type: Spontaneous
  Country: US (occurrence: US)
  Receive Date: 20101228
  Receipt Date: 20140127
  Transmission Date: 20141002
  Serious: No
  Sender: FDA-Public Use
  Company Number: US-MYLANLABS-2010S1019884

PATIENT
  Sex: Female

DRUGS (3)
  1. CETIRIZINE HYDROCHLORIDE TABLETS [Suspect]
     Indication: HYPERSENSITIVITY
     Route: 048
     Dates: start: 20101012, end: 201011
  2. CETIRIZINE HYDROCHLORIDE TABLETS [Suspect]
     Indication: RHINORRHOEA
     Route: 048
     Dates: start: 20101012, end: 201011
  3. CETIRIZINE HYDROCHLORIDE TABLETS [Suspect]
     Indication: LACRIMATION INCREASED
     Route: 048
     Dates: start: 20101012, end: 201011

REACTIONS (3)
  - Hypersensitivity [Recovered/Resolved]
  - Reaction to drug excipients [Recovered/Resolved]
  - Discomfort [Recovered/Resolved]
